FAERS Safety Report 21997550 (Version 1)
Quarter: 2023Q1

REPORT INFORMATION
  Report Type: Spontaneous
  Country: US (occurrence: US)
  Receive Date: 20230216
  Receipt Date: 20230216
  Transmission Date: 20230418
  Serious: Yes (Other)
  Sender: FDA-Public Use
  Company Number: US-CTI BIOPHARMA-2023US03372

PATIENT

DRUGS (12)
  1. VONJO [Suspect]
     Active Substance: PACRITINIB
     Indication: Myeloproliferative neoplasm
     Dosage: 100 MG, BID
     Route: 048
  2. CLONIDINE [Concomitant]
     Active Substance: CLONIDINE
  3. ESCITALOPRAM [Concomitant]
     Active Substance: ESCITALOPRAM OXALATE
  4. FOLIC ACID [Concomitant]
     Active Substance: FOLIC ACID
  5. LOSARTAN [Concomitant]
     Active Substance: LOSARTAN
  6. LEVOTHYROXINE [Concomitant]
     Active Substance: LEVOTHYROXINE
  7. MAGNESIUM HYDROXIDE [Concomitant]
     Active Substance: MAGNESIUM HYDROXIDE
  8. MORPHINE [Concomitant]
     Active Substance: MORPHINE
  9. OLANZAPINE [Concomitant]
     Active Substance: OLANZAPINE
  10. PAROXETINE [Concomitant]
     Active Substance: PAROXETINE
  11. POTASSIUM CHLORIDE [Concomitant]
     Active Substance: POTASSIUM CHLORIDE
  12. TRAZODONE [Concomitant]
     Active Substance: TRAZODONE HYDROCHLORIDE

REACTIONS (1)
  - Internal haemorrhage [Unknown]
